FAERS Safety Report 7263134-2 (Version None)
Quarter: 2011Q1

REPORT INFORMATION
  Report Type: 
  Country: None (occurrence: None)
  Receive Date: 20110130
  Receipt Date: 20101022
  Transmission Date: 20110831
  Serious: No
  Sender: FDA-Public Use
  Company Number: US-ABBOTT-10P-163-0680364-00

PATIENT
  Sex: Female
  Weight: 72.64 kg

DRUGS (21)
  1. FOLIC ACID [Concomitant]
     Indication: PRODUCT USED FOR UNKNOWN INDICATION
     Route: 048
  2. EFFEXOR [Concomitant]
     Indication: ANXIETY
  3. MIRAPEX [Concomitant]
     Indication: RESTLESS LEGS SYNDROME
     Route: 048
  4. ALPRAZOLAM [Concomitant]
     Indication: ANXIETY
     Dosage: HALF OF 1MG DAILY
     Route: 048
  5. ALPRAZOLAM [Concomitant]
     Indication: INSOMNIA
  6. AMRIX ER [Concomitant]
     Indication: RESTLESS LEGS SYNDROME
  7. EVAMIST [Concomitant]
     Indication: HORMONE REPLACEMENT THERAPY
     Dosage: 1 SPRAY ON ARM DAILY
     Route: 061
  8. NORCO [Concomitant]
     Indication: FIBROMYALGIA
  9. PREVACID [Concomitant]
     Indication: DYSPEPSIA
     Route: 048
  10. NUVIGIL [Concomitant]
     Indication: RESTLESS LEGS SYNDROME
  11. NORCO [Concomitant]
     Indication: ARTHRALGIA
     Dosage: 10/325, HALF DAILY
     Route: 048
  12. TESTOSTERONE [Concomitant]
     Indication: HORMONE LEVEL ABNORMAL
     Dosage: 2 CLICKS APPLY TO INNER THIGH,ONCE DAILY
     Route: 061
  13. PROMETRIUM [Concomitant]
     Indication: HORMONE REPLACEMENT THERAPY
     Route: 048
  14. AMRIX ER [Concomitant]
     Indication: ARTHRALGIA
     Route: 048
     Dates: start: 20100901
  15. HUMIRA [Suspect]
     Indication: RHEUMATOID ARTHRITIS
     Route: 058
     Dates: start: 20100801, end: 20101029
  16. LYRICA [Concomitant]
     Indication: FIBROMYALGIA
     Route: 048
  17. AMRIX ER [Concomitant]
     Indication: FIBROMYALGIA
  18. COMPOUND THYROID PREPARATION [Concomitant]
     Indication: HYPOTHYROIDISM
     Dosage: ONCE DAILY
     Route: 048
  19. NUVIGIL [Concomitant]
     Indication: SLEEP APNOEA SYNDROME
     Route: 048
  20. NUVIGIL [Concomitant]
     Indication: DEPRESSED LEVEL OF CONSCIOUSNESS
  21. EFFEXOR [Concomitant]
     Indication: MOOD ALTERED
     Route: 048

REACTIONS (4)
  - PAIN IN EXTREMITY [None]
  - OEDEMA PERIPHERAL [None]
  - PRODUCTIVE COUGH [None]
  - NASOPHARYNGITIS [None]
